FAERS Safety Report 17776107 (Version 1)
Quarter: 2020Q2

REPORT INFORMATION
  Report Type: Spontaneous
  Country: US (occurrence: US)
  Receive Date: 20200513
  Receipt Date: 20200513
  Transmission Date: 20200714
  Serious: Yes (Life-Threatening, Hospitalization, Disabling)
  Sender: FDA-Public Use
  Company Number: None

PATIENT
  Age: 43 Year
  Sex: Male

DRUGS (9)
  1. LITHIUM CARBONATE 600MG CAPSULE [Suspect]
     Active Substance: LITHIUM CARBONATE
     Indication: OBSESSIVE-COMPULSIVE DISORDER
     Dosage: ?          QUANTITY:2 CAPSULE(S);?
     Route: 048
  2. MEDROL [Suspect]
     Active Substance: METHYLPREDNISOLONE
  3. LATUDA [Suspect]
     Active Substance: LURASIDONE HYDROCHLORIDE
  4. LITHIUM CARBONATE 600MG CAPSULE [Suspect]
     Active Substance: LITHIUM CARBONATE
     Indication: BIPOLAR DISORDER
     Dosage: ?          QUANTITY:2 CAPSULE(S);?
     Route: 048
  5. FENOFIBRATE. [Concomitant]
     Active Substance: FENOFIBRATE
  6. LITHIUM. [Concomitant]
     Active Substance: LITHIUM
  7. LITHIUM CARBONATE 600MG CAPSULE [Suspect]
     Active Substance: LITHIUM CARBONATE
     Indication: ANXIETY
     Dosage: ?          QUANTITY:2 CAPSULE(S);?
     Route: 048
  8. LAMOTRIGINE. [Concomitant]
     Active Substance: LAMOTRIGINE
  9. LATUDA [Concomitant]
     Active Substance: LURASIDONE HYDROCHLORIDE

REACTIONS (18)
  - Increased appetite [None]
  - Gastrointestinal motility disorder [None]
  - Abdominal discomfort [None]
  - Nervousness [None]
  - Anxiety [None]
  - Sleep apnoea syndrome [None]
  - Nightmare [None]
  - Urine output increased [None]
  - Penile pain [None]
  - Abnormal faeces [None]
  - Fear of death [None]
  - Amnesia [None]
  - Agitation [None]
  - Insomnia [None]
  - Hunger [None]
  - Weight increased [None]
  - Bone pain [None]
  - Constipation [None]

NARRATIVE: CASE EVENT DATE: 20200301
